FAERS Safety Report 19506825 (Version 1)
Quarter: 2021Q3

REPORT INFORMATION
  Report Type: Spontaneous
  Country: US (occurrence: US)
  Receive Date: 20210708
  Receipt Date: 20210708
  Transmission Date: 20211014
  Serious: Yes (Other)
  Sender: FDA-Public Use
  Company Number: None

PATIENT
  Age: 54 Year
  Sex: Female
  Weight: 110.7 kg

DRUGS (1)
  1. PACLITAXEL. [Suspect]
     Active Substance: PACLITAXEL
     Indication: BREAST CANCER
     Dosage: ?          OTHER FREQUENCY:ONCE;?
     Route: 041
     Dates: start: 20210423, end: 20210423

REACTIONS (6)
  - Back pain [None]
  - Ear discomfort [None]
  - Nausea [None]
  - Vomiting [None]
  - Lethargy [None]
  - Asthenia [None]

NARRATIVE: CASE EVENT DATE: 20210423
